FAERS Safety Report 23944740 (Version 1)
Quarter: 2024Q2

REPORT INFORMATION
  Report Type: Other
  Country: CA (occurrence: CA)
  Receive Date: 20240606
  Receipt Date: 20240606
  Transmission Date: 20240715
  Serious: Yes (Hospitalization, Other)
  Sender: FDA-Public Use
  Company Number: CA-BIOCON BIOLOGICS LIMITED-BBL2024003876

PATIENT

DRUGS (2)
  1. OGIVRI [Suspect]
     Active Substance: TRASTUZUMAB-DKST
     Indication: Breast cancer metastatic
     Dosage: 346 MILLIGRAM,1 EVERY 1 MONTHS
     Route: 042
  2. OGIVRI [Suspect]
     Active Substance: TRASTUZUMAB-DKST
     Dosage: 378 MILLIGRAM,1 EVERY 21 DAYS
     Route: 042

REACTIONS (6)
  - Tremor [Unknown]
  - Palpitations [Unknown]
  - Herpes zoster [Unknown]
  - Chills [Unknown]
  - Blood pressure increased [Unknown]
  - Back pain [Unknown]
